FAERS Safety Report 11232648 (Version 1)
Quarter: 2015Q3

REPORT INFORMATION
  Report Type: Spontaneous
  Country: AU (occurrence: AU)
  Receive Date: 20150701
  Receipt Date: 20150701
  Transmission Date: 20151125
  Serious: Yes (Hospitalization)
  Sender: FDA-Public Use
  Company Number: AU-BAXTER-2015BAX035447

PATIENT
  Sex: Female

DRUGS (1)
  1. PHYSIONEAL 40 GLUCOSE 1.36% W/V PERITONEAL DIALYSIS SOLUTION BAG 5L [Suspect]
     Active Substance: CALCIUM CHLORIDE\DEXTROSE\MAGNESIUM CHLORIDE\SODIUM CHLORIDE SOLUTION
     Indication: PERITONEAL DIALYSIS
     Route: 033

REACTIONS (1)
  - Fungal infection [Unknown]
